FAERS Safety Report 5072094-4 (Version None)
Quarter: 2006Q3

REPORT INFORMATION
  Report Type: 
  Country: None (occurrence: None)
  Receive Date: 20060807
  Receipt Date: 20060302
  Transmission Date: 20061208
  Serious: Yes (Death, Hospitalization)
  Sender: FDA-Public Use
  Company Number: US-BRISTOL-MYERS SQUIBB COMPANY-13301692

PATIENT
  Age: 71 Year
  Sex: Female
  Weight: 883 kg

DRUGS (15)
  1. CARBOPLATIN [Suspect]
     Indication: SMALL CELL LUNG CANCER STAGE UNSPECIFIED
     Route: 042
     Dates: start: 20031212, end: 20040206
  2. IRINOTECAN HCL [Suspect]
     Indication: SMALL CELL LUNG CANCER STAGE UNSPECIFIED
     Route: 042
     Dates: start: 20031119, end: 20040206
  3. TOPROL-XL [Concomitant]
     Route: 048
     Dates: start: 19990101
  4. SYNTHROID [Concomitant]
     Route: 048
     Dates: start: 19990101
  5. PREMARIN [Concomitant]
     Route: 048
     Dates: start: 19950101
  6. CELEBREX [Concomitant]
     Route: 048
     Dates: start: 20010101
  7. LIPITOR [Concomitant]
     Route: 048
     Dates: start: 20010101
  8. ASPIRIN [Concomitant]
     Route: 048
     Dates: start: 19930101
  9. COMBIVENT [Concomitant]
     Route: 055
     Dates: start: 20020101
  10. ADVAIR DISKUS 100/50 [Concomitant]
     Route: 055
     Dates: start: 20010101
  11. DURAGESIC-100 [Concomitant]
     Route: 062
     Dates: start: 20031208
  12. DEMECLOCYCLINE [Concomitant]
     Route: 048
     Dates: start: 20031226
  13. MAGNESIUM SULFATE [Concomitant]
     Route: 048
     Dates: start: 20031226
  14. LORAZEPAM [Concomitant]
     Route: 048
     Dates: start: 20031226
  15. SENNA [Concomitant]
     Dates: start: 20031225

REACTIONS (5)
  - ABDOMINAL PAIN [None]
  - DEATH [None]
  - DIARRHOEA [None]
  - LEUKOPENIA [None]
  - SYNCOPE [None]
